FAERS Safety Report 17289412 (Version 2)
Quarter: 2020Q2

REPORT INFORMATION
  Report Type: Spontaneous
  Country: US (occurrence: US)
  Receive Date: 20200120
  Receipt Date: 20200626
  Transmission Date: 20200713
  Serious: No
  Sender: FDA-Public Use
  Company Number: US-HTU-2019US019870

PATIENT
  Sex: Female

DRUGS (4)
  1. INTERFERON [Concomitant]
     Active Substance: INTERFERON
     Dosage: UNK, 0.5 CC
  2. INTERFERON [Concomitant]
     Active Substance: INTERFERON
     Dosage: UNK, 0,5 CC
     Dates: end: 202001
  3. VALCHLOR [Suspect]
     Active Substance: MECHLORETHAMINE
     Indication: CUTANEOUS T-CELL LYMPHOMA
     Dosage: UNK, QD
     Route: 061
     Dates: start: 20191012, end: 20191212
  4. INTERFERON [Concomitant]
     Active Substance: INTERFERON
     Dosage: UNK, 0.2 CC

REACTIONS (5)
  - Condition aggravated [Not Recovered/Not Resolved]
  - Erythema [Not Recovered/Not Resolved]
  - Pruritus [Not Recovered/Not Resolved]
  - Drug ineffective [Not Recovered/Not Resolved]
  - Sleep disorder due to general medical condition, insomnia type [Not Recovered/Not Resolved]
